FAERS Safety Report 5549885-6 (Version None)
Quarter: 2007Q4

REPORT INFORMATION
  Report Type: 
  Country: None (occurrence: None)
  Receive Date: 20071212
  Receipt Date: 20071210
  Transmission Date: 20080405
  Serious: Yes (Life-Threatening, Hospitalization)
  Sender: FDA-Public Use
  Company Number: FR-BRISTOL-MYERS SQUIBB COMPANY-14010433

PATIENT
  Age: 49 Year
  Sex: Female

DRUGS (6)
  1. IRBESARTAN [Suspect]
     Dates: end: 20071016
  2. ASPEGIC 1000 [Suspect]
     Indication: PAIN
     Dosage: INCREASED DOSE FROM 06-OCT-2007
     Dates: end: 20071016
  3. ANTADYS [Suspect]
     Indication: PAIN
     Dates: start: 20071006, end: 20071016
  4. LASILIX RETARD [Suspect]
     Dates: end: 20071016
  5. TENORMIN [Concomitant]
  6. FENOFIBRATE [Concomitant]

REACTIONS (6)
  - CARDIAC FAILURE [None]
  - GENERAL PHYSICAL HEALTH DETERIORATION [None]
  - HYPERKALAEMIA [None]
  - HYPOXIA [None]
  - RENAL FAILURE [None]
  - RESPIRATORY ACIDOSIS [None]
